FAERS Safety Report 10055250 (Version 2)
Quarter: 2014Q2

REPORT INFORMATION
  Report Type: Report from Study
  Country: PL (occurrence: PL)
  Receive Date: 20140403
  Receipt Date: 20140403
  Transmission Date: 20141212
  Serious: Yes (Hospitalization)
  Sender: FDA-Public Use
  Company Number: PL-AMGEN-POLNI2013015874

PATIENT
  Age: 56 Year
  Sex: 0

DRUGS (12)
  1. CINACALCET HCL [Suspect]
     Indication: HYPERPARATHYROIDISM SECONDARY
     Dosage: 30 MG, QD
     Route: 048
     Dates: start: 20110411, end: 20110414
  2. FOSRENOL [Concomitant]
     Dosage: 500 MG, TID
     Route: 048
     Dates: start: 20110501, end: 20120111
  3. METOCARD [Concomitant]
     Dosage: 50 MG, TID
     Route: 048
     Dates: start: 20091126
  4. NITRENDYPINA [Concomitant]
     Dosage: 20 MG, TID
     Route: 048
     Dates: start: 20091126
  5. WEGLAN WAPNIA [Concomitant]
     Dosage: 1 G, TID
     Route: 048
     Dates: start: 20091214, end: 20120222
  6. ENARENAL [Concomitant]
     Dosage: 10 MG, BID
     Route: 048
     Dates: start: 20091214
  7. ZOXON                              /00639301/ [Concomitant]
     Dosage: 4 MG, QD
     Route: 048
     Dates: start: 20091126
  8. FOLICUM [Concomitant]
     Dosage: 5 MG, QD
     Route: 048
     Dates: start: 20091214
  9. MILURIT [Concomitant]
     Dosage: 100 MG, QD
     Route: 048
     Dates: start: 20091126
  10. CLEXANE [Concomitant]
     Dosage: 40 MG, UNK
     Route: 058
     Dates: start: 20091126, end: 20120111
  11. ZAFIRON [Concomitant]
     Dosage: UNK
     Route: 048
     Dates: start: 20110309, end: 20130626
  12. PULMICORT [Concomitant]
     Dosage: UNK
     Route: 048
     Dates: start: 20110309, end: 20130626

REACTIONS (1)
  - Tongue oedema [Recovered/Resolved]
